FAERS Safety Report 25941900 (Version 1)
Quarter: 2025Q4

REPORT INFORMATION
  Report Type: Spontaneous
  Country: US (occurrence: None)
  Receive Date: 20251020
  Receipt Date: 20251020
  Transmission Date: 20260117
  Serious: Yes (Hospitalization)
  Sender: FDA-CTU
  Company Number: None

PATIENT
  Sex: Male

DRUGS (1)
  1. FYLNETRA [Suspect]
     Active Substance: PEGFILGRASTIM-PBBK
     Indication: Bone disorder
     Dosage: 2.5 MG EVERY 28 DAYS SUBCUTANEOUS
     Route: 058
     Dates: start: 20250814

REACTIONS (1)
  - Body temperature increased [None]
